FAERS Safety Report 11337458 (Version 1)
Quarter: 2015Q3

REPORT INFORMATION
  Report Type: Spontaneous
  Country: US (occurrence: US)
  Receive Date: 20150803
  Receipt Date: 20150803
  Transmission Date: 20151125
  Serious: No
  Sender: FDA-Public Use
  Company Number: US-ELI_LILLY_AND_COMPANY-US200906007127

PATIENT
  Age: 33 Year
  Sex: Male

DRUGS (3)
  1. ALCOHOL. [Concomitant]
     Active Substance: ALCOHOL
  2. COCAINE [Concomitant]
     Active Substance: COCAINE
  3. ZYPREXA [Suspect]
     Active Substance: OLANZAPINE
     Indication: BIPOLAR DISORDER
     Dosage: 15 MG, UNK
     Dates: start: 200906, end: 200906

REACTIONS (1)
  - Restless legs syndrome [Unknown]

NARRATIVE: CASE EVENT DATE: 200906
